FAERS Safety Report 7675760-7 (Version None)
Quarter: 2011Q3

REPORT INFORMATION
  Report Type: 
  Country: None (occurrence: None)
  Receive Date: 20110810
  Receipt Date: 20110516
  Transmission Date: 20111222
  Serious: Yes (Hospitalization)
  Sender: FDA-Public Use
  Company Number: PHHY2011US60156

PATIENT
  Age: 31 Year
  Sex: Female

DRUGS (3)
  1. GEODON [Concomitant]
     Dosage: UNK UKN, UNK
  2. LATUDA [Suspect]
     Dosage: 40 MG, BID
     Route: 048
     Dates: end: 20110516
  3. TEGRETOL [Suspect]
     Dosage: UNK UKN, UNK

REACTIONS (1)
  - PSYCHOTIC DISORDER [None]
